FAERS Safety Report 17300394 (Version 1)
Quarter: 2020Q1

REPORT INFORMATION
  Report Type: Spontaneous
  Country: US (occurrence: US)
  Receive Date: 20200103
  Receipt Date: 20200103
  Transmission Date: 20200409
  Serious: Yes (Hospitalization)
  Sender: FDA-Public Use
  Company Number: None

PATIENT
  Age: 49 Year
  Sex: Female

DRUGS (13)
  1. HUMIRA [Suspect]
     Active Substance: ADALIMUMAB
     Indication: PSORIASIS
     Dosage: ?          OTHER FREQUENCY:Q2WKS;?
     Route: 058
     Dates: start: 20180314
  2. LEVOFLOXACIN. [Concomitant]
     Active Substance: LEVOFLOXACIN
  3. CIPROFLOXACN [Concomitant]
     Active Substance: CIPROFLOXACIN
  4. DOXYCYCL HYC 100 MG GENERIC FOR VIBRA TAB 100 MG [Concomitant]
     Active Substance: DOXYCYCLINE HYCLATE
  5. GABAPENTIN. [Concomitant]
     Active Substance: GABAPENTIN
  6. LAMOTRIGINE. [Concomitant]
     Active Substance: LAMOTRIGINE
  7. FEROSUL [Concomitant]
     Active Substance: FERROUS SULFATE
  8. HALOBETASOL [Concomitant]
     Active Substance: HALOBETASOL PROPIONATE
  9. QUETIAPINE. [Concomitant]
     Active Substance: QUETIAPINE
  10. DISULFIRAM. [Concomitant]
     Active Substance: DISULFIRAM
  11. HYDROMORPHON TAB [Concomitant]
  12. OXYCODONE AND ACETAMINOPHEN [Concomitant]
     Active Substance: ACETAMINOPHEN\OXYCODONE HYDROCHLORIDE
  13. VENLAFAXINE [Concomitant]
     Active Substance: VENLAFAXINE HYDROCHLORIDE

REACTIONS (1)
  - Surgery [None]

NARRATIVE: CASE EVENT DATE: 20200102
